FAERS Safety Report 4398228-2 (Version None)
Quarter: 2004Q3

REPORT INFORMATION
  Report Type: 
  Country: None (occurrence: None)
  Receive Date: 20040715
  Receipt Date: 20040707
  Transmission Date: 20050211
  Serious: Yes (Life-Threatening)
  Sender: FDA-Public Use
  Company Number: 200412114EU

PATIENT
  Age: 69 Year
  Sex: Male
  Weight: 77 kg

DRUGS (5)
  1. TRENTAL [Suspect]
     Route: 048
     Dates: end: 20040603
  2. RAMIPRIL [Suspect]
     Route: 048
     Dates: end: 20040603
  3. CLONIXIN LYSINATE [Suspect]
     Route: 048
     Dates: end: 20040603
  4. CIPROFLOXACIN [Suspect]
     Route: 048
     Dates: end: 20040603
  5. INSULIN ISOPHANE [Suspect]

REACTIONS (5)
  - COAGULOPATHY [None]
  - CONDITION AGGRAVATED [None]
  - DIABETIC FOOT INFECTION [None]
  - HEPATIC FAILURE [None]
  - HEPATIC NEOPLASM MALIGNANT [None]
